FAERS Safety Report 21914061 (Version 2)
Quarter: 2023Q1

REPORT INFORMATION
  Report Type: Report from Study
  Country: BE (occurrence: BE)
  Receive Date: 20230126
  Receipt Date: 20230201
  Transmission Date: 20230418
  Serious: No
  Sender: FDA-Public Use
  Company Number: BE-ABBVIE-4282251

PATIENT
  Sex: Female
  Weight: 67 kg

DRUGS (19)
  1. CARBIDOPA\LEVODOPA [Suspect]
     Active Substance: CARBIDOPA\LEVODOPA
     Indication: Parkinson^s disease
     Dosage: MD 5.5 ML, CD 2.4 ML/H RUNNING AT 16H, ED 1.5 ML
     Route: 050
     Dates: start: 20221220, end: 20221227
  2. CARBIDOPA\LEVODOPA [Suspect]
     Active Substance: CARBIDOPA\LEVODOPA
     Route: 050
     Dates: start: 20221219
  3. CARBIDOPA\LEVODOPA [Suspect]
     Active Substance: CARBIDOPA\LEVODOPA
     Dosage: MD 6.5 ML, CD 2.8 ML/H RUNNING AT 16H, ED 2.5 ML
     Route: 050
     Dates: start: 20230102, end: 20230110
  4. CARBIDOPA\LEVODOPA [Suspect]
     Active Substance: CARBIDOPA\LEVODOPA
     Dosage: MD 6.5 ML, CD 2.6 ML/H RUNNING AT 16H, ED 2.0 ML
     Route: 050
     Dates: start: 20221227, end: 20230102
  5. CARBIDOPA\LEVODOPA [Suspect]
     Active Substance: CARBIDOPA\LEVODOPA
     Dosage: MD 6.5 ML, CD 3.0  ML/H RUNNING AT 16H, ED 2.5 ML
     Route: 050
     Dates: start: 20230110, end: 20230116
  6. CARBIDOPA\LEVODOPA [Suspect]
     Active Substance: CARBIDOPA\LEVODOPA
     Dosage: MD 6.5 ML, CD 2.6 ML/H RUNNING AT 16H, ED 2.0 ML
     Route: 050
     Dates: start: 20220825, end: 20221220
  7. CARBIDOPA\LEVODOPA [Suspect]
     Active Substance: CARBIDOPA\LEVODOPA
     Dosage: MD 6.5 ML, CD 3.0 ML/H RUNNING AT 16H, ED 3.0 ML
     Route: 050
     Dates: start: 20220116
  8. BENSERAZIDE\LEVODOPA [Concomitant]
     Active Substance: BENSERAZIDE\LEVODOPA
     Indication: Parkinson^s disease
     Dosage: 1 TABLET OF 250MG; FREQUENCY TEXT: AT 20:15
  9. BENSERAZIDE\LEVODOPA [Concomitant]
     Active Substance: BENSERAZIDE\LEVODOPA
     Indication: Parkinson^s disease
     Dosage: HALF TABLET OF 250MG; FREQUENCY TEXT: AT 11:00
  10. DIAZEPAM [Concomitant]
     Active Substance: DIAZEPAM
     Indication: Product used for unknown indication
     Dosage: FREQUENCY TEXT: AT SLEEP
  11. XADAGO [Concomitant]
     Active Substance: SAFINAMIDE MESYLATE
     Indication: Parkinson^s disease
     Dosage: FREQUENCY TEXT: AT 8:30
     Route: 048
  12. COLOFIBER [Concomitant]
     Indication: Abnormal faeces
  13. STALEVO [Concomitant]
     Active Substance: CARBIDOPA\ENTACAPONE\LEVODOPA
     Indication: Parkinson^s disease
     Dosage: FREQUENCY TEXT: SOBER, AT 13:30, AT 17:30
     Route: 048
  14. VESICARE [Concomitant]
     Active Substance: SOLIFENACIN SUCCINATE
     Indication: Urinary incontinence
     Dosage: FREQUENCY TEXT: AT SLEEP
  15. REQUIP [Concomitant]
     Active Substance: ROPINIROLE HYDROCHLORIDE
     Indication: Parkinson^s disease
     Route: 048
  16. MIRTAZAPINE [Concomitant]
     Active Substance: MIRTAZAPINE
     Indication: Antidepressant therapy
     Dosage: FREQUENCY TEXT: AT SLEEP
  17. BENSERAZIDE\LEVODOPA [Concomitant]
     Active Substance: BENSERAZIDE\LEVODOPA
     Indication: Parkinson^s disease
     Dosage: FREQUENCY TEXT: AT 22:15
     Route: 048
  18. PRAZEPAM [Concomitant]
     Active Substance: PRAZEPAM
     Indication: Anxiety
     Dosage: FREQUENCY TEXT: AT 8:00
  19. SERTRALINE HYDROCHLORIDE [Concomitant]
     Active Substance: SERTRALINE HYDROCHLORIDE
     Indication: Antidepressant therapy
     Dosage: 50 MG EQUAL 1/2 TABLET?FREQUENCY TEXT: AT 12;00
     Route: 048

REACTIONS (1)
  - Unevaluable event [Unknown]
